FAERS Safety Report 21220142 (Version 9)
Quarter: 2023Q4

REPORT INFORMATION
  Report Type: Spontaneous
  Country: CA (occurrence: CA)
  Receive Date: 20220817
  Receipt Date: 20231012
  Transmission Date: 20240109
  Serious: Yes (Hospitalization, Other)
  Sender: FDA-Public Use
  Company Number: CA-CELLTRION INC.-2022CA008527

PATIENT

DRUGS (12)
  1. INFLECTRA [Suspect]
     Active Substance: INFLIXIMAB-DYYB
     Indication: Crohn^s disease
     Dosage: 500 MG, AT WEEK 0, 2 AND 6 WEEKS THEN Q 8 WEEKS
     Route: 042
     Dates: start: 20220413
  2. INFLECTRA [Suspect]
     Active Substance: INFLIXIMAB-DYYB
     Dosage: 500 MG, AT WEEK 0, 2 AND 6 WEEKS THEN Q 8 WEEKS
     Route: 042
     Dates: start: 20220427
  3. INFLECTRA [Suspect]
     Active Substance: INFLIXIMAB-DYYB
     Dosage: 500 MG, AT WEEK 0, 2 AND 6 WEEKS THEN Q 8 WEEKS
     Route: 042
     Dates: start: 20220525
  4. INFLECTRA [Suspect]
     Active Substance: INFLIXIMAB-DYYB
     Dosage: 500 MG, AT WEEK 0, 2 AND 6 WEEKS THEN Q 8 WEEKS
     Route: 042
     Dates: start: 20220525
  5. INFLECTRA [Suspect]
     Active Substance: INFLIXIMAB-DYYB
     Dosage: 500 MG, AT WEEK 0, 2 AND 6 WEEKS THEN Q 8 WEEKS
     Route: 042
     Dates: start: 20221116
  6. INFLECTRA [Suspect]
     Active Substance: INFLIXIMAB-DYYB
     Dosage: 500 MG, AT WEEK 0, 2 AND 6 WEEKS THEN Q 8 WEEKS
     Route: 042
     Dates: start: 20221116
  7. INFLECTRA [Suspect]
     Active Substance: INFLIXIMAB-DYYB
     Dosage: 500 MG, AT WEEK 0, 2 AND 6 WEEKS THEN Q 8 WEEKS
     Route: 042
     Dates: start: 20230111
  8. INFLECTRA [Suspect]
     Active Substance: INFLIXIMAB-DYYB
     Dosage: 500 MG, AT WEEK 0, 2 AND 6 WEEKS THEN Q 8 WEEKS
     Route: 042
     Dates: start: 20230111
  9. INFLECTRA [Suspect]
     Active Substance: INFLIXIMAB-DYYB
     Dosage: 500 MG, AT WEEK 0, 2 AND 6 WEEKS THEN Q 8 WEEKS
     Route: 042
     Dates: start: 20230322
  10. INFLECTRA [Suspect]
     Active Substance: INFLIXIMAB-DYYB
     Dosage: 500 MG, Q 0, 2 AND 6 WEEKS THEN Q 8 WEEKS
     Route: 042
     Dates: start: 20230517
  11. INFLECTRA [Suspect]
     Active Substance: INFLIXIMAB-DYYB
     Dosage: 500 MG AFTER 9 WEEKS 1 DAY (SUPPOSED TO RECIEVED Q 0, 2 AND 6 WEEKS THEN Q 8 WEEKS)
     Route: 042
     Dates: start: 20230720, end: 20230720
  12. INFLECTRA [Suspect]
     Active Substance: INFLIXIMAB-DYYB
     Dosage: 500 MG EVERY 8 WEEKS (AFTER 11 WEEKS, ABOUT 10 WEEKS AND 6 DAYS AFTER LAST TREATMENT)
     Route: 042
     Dates: start: 20231004

REACTIONS (11)
  - Stoma closure [Recovered/Resolved]
  - Infection [Unknown]
  - Condition aggravated [Recovered/Resolved]
  - Arthralgia [Unknown]
  - Dehydration [Not Recovered/Not Resolved]
  - Dry skin [Not Recovered/Not Resolved]
  - Decreased appetite [Not Recovered/Not Resolved]
  - Poor venous access [Not Recovered/Not Resolved]
  - Off label use [Unknown]
  - Intentional product use issue [Unknown]
  - Inappropriate schedule of product administration [Unknown]

NARRATIVE: CASE EVENT DATE: 20220427
